FAERS Safety Report 5074678-6 (Version None)
Quarter: 2006Q3

REPORT INFORMATION
  Report Type: 
  Country: None (occurrence: None)
  Receive Date: 20060803
  Receipt Date: 20060724
  Transmission Date: 20061208
  Serious: No
  Sender: FDA-Public Use
  Company Number: B0432660A

PATIENT
  Age: 23 Year
  Sex: Female

DRUGS (6)
  1. METOCLOPRAMIDE HCL [Suspect]
     Indication: NAUSEA
     Dosage: 10 MG / INTRAVENOUS
     Route: 042
  2. ZOFRAN [Suspect]
     Indication: NAUSEA
     Dosage: 4 MG / INTRAVENOUS
     Route: 042
  3. COMPAZINE [Suspect]
     Dosage: 10 MG / INTRAVENOUS
     Route: 042
  4. DEXAMETHASONE [Concomitant]
  5. HYOSCINE HBR HYT [Concomitant]
  6. THYROXINE SODIUM [Concomitant]

REACTIONS (4)
  - DYSKINESIA [None]
  - DYSTONIA [None]
  - SPEECH DISORDER [None]
  - TORTICOLLIS [None]
